FAERS Safety Report 24788515 (Version 2)
Quarter: 2025Q2

REPORT INFORMATION
  Report Type: Spontaneous
  Country: JP (occurrence: JP)
  Receive Date: 20241230
  Receipt Date: 20250418
  Transmission Date: 20250717
  Serious: Yes (Life-Threatening, Other)
  Sender: ALEXION PHARMACEUTICALS
  Company Number: JP-ASTRAZENECA-240146315_011620_P_1

PATIENT
  Age: 66 Year

DRUGS (2)
  1. LYNPARZA [Suspect]
     Active Substance: OLAPARIB
     Indication: Ovarian cancer
  2. BEVACIZUMAB [Concomitant]
     Active Substance: BEVACIZUMAB
     Route: 065

REACTIONS (1)
  - Interstitial lung disease [Unknown]
